FAERS Safety Report 20723733 (Version 3)
Quarter: 2022Q2

REPORT INFORMATION
  Report Type: Report from Study
  Country: CA (occurrence: CA)
  Receive Date: 20220419
  Receipt Date: 20220523
  Transmission Date: 20220720
  Serious: Yes (Other)
  Sender: FDA-Public Use
  Company Number: CA-JNJFOC-20220428521

PATIENT
  Sex: Female

DRUGS (1)
  1. REMICADE [Suspect]
     Active Substance: INFLIXIMAB
     Indication: Scleritis
     Dosage: EXPIRY DATE: 31-OCT-2024
     Route: 042

REACTIONS (4)
  - Skin cancer [Not Recovered/Not Resolved]
  - Osteonecrosis [Recovered/Resolved]
  - Uterine polyp [Recovered/Resolved]
  - Vertigo [Recovering/Resolving]
